FAERS Safety Report 14566475 (Version 1)
Quarter: 2018Q1

REPORT INFORMATION
  Report Type: Report from Study
  Country: US (occurrence: US)
  Receive Date: 20180223
  Receipt Date: 20180223
  Transmission Date: 20180509
  Serious: Yes (Other)
  Sender: FDA-Public Use
  Company Number: US-JNJFOC-20180230087

PATIENT
  Age: 85 Year
  Sex: Male

DRUGS (15)
  1. STOOL SOFTENER (DOCUSATE) [Concomitant]
     Active Substance: DOCUSATE
  2. ASPIRIN. [Concomitant]
     Active Substance: ASPIRIN
  3. IMBRUVICA [Suspect]
     Active Substance: IBRUTINIB
     Indication: CHRONIC LYMPHOCYTIC LEUKAEMIA
     Route: 048
     Dates: start: 20180214
  4. ADENOSINE. [Concomitant]
     Active Substance: ADENOSINE
  5. ONDANSETRON [Concomitant]
     Active Substance: ONDANSETRON
  6. METAMUCIL [Concomitant]
     Active Substance: PLANTAGO SEED
  7. TRAMADOL. [Concomitant]
     Active Substance: TRAMADOL
  8. CENTRUM [Concomitant]
     Active Substance: VITAMINS
  9. PLAVIX [Concomitant]
     Active Substance: CLOPIDOGREL BISULFATE
  10. LISINOPRIL. [Concomitant]
     Active Substance: LISINOPRIL
  11. SERTRALINE [Concomitant]
     Active Substance: SERTRALINE HYDROCHLORIDE
  12. SIMVASTATIN. [Concomitant]
     Active Substance: SIMVASTATIN
  13. TAMSULOSIN [Concomitant]
     Active Substance: TAMSULOSIN
  14. VITAMIN D3 [Concomitant]
     Active Substance: CHOLECALCIFEROL
  15. ALLEGRA [Concomitant]
     Active Substance: FEXOFENADINE HYDROCHLORIDE

REACTIONS (1)
  - Choking [Unknown]

NARRATIVE: CASE EVENT DATE: 201802
